FAERS Safety Report 8158342-2 (Version None)
Quarter: 2012Q1

REPORT INFORMATION
  Report Type: 
  Country: None (occurrence: None)
  Receive Date: 20120217
  Receipt Date: 20120202
  Transmission Date: 20120608
  Serious: Yes (Death)
  Sender: FDA-Public Use
  Company Number: 2012020095

PATIENT
  Age: 27 Year
  Sex: Female

DRUGS (3)
  1. CARISOPRODOL [Suspect]
  2. ACETAMINOPHEN [Suspect]
  3. MEPROBAMATE [Suspect]

REACTIONS (2)
  - INTENTIONAL DRUG MISUSE [None]
  - COMPLETED SUICIDE [None]
